FAERS Safety Report 9745580 (Version 4)
Quarter: 2014Q3

REPORT INFORMATION
  Report Type: Report from Study
  Country: US (occurrence: US)
  Receive Date: 20131211
  Receipt Date: 20140926
  Transmission Date: 20150326
  Serious: Yes (Other)
  Sender: FDA-Public Use
  Company Number: US-ALEXION-A201303640

PATIENT

DRUGS (1)
  1. SOLIRIS [Suspect]
     Active Substance: ECULIZUMAB
     Indication: PAROXYSMAL NOCTURNAL HAEMOGLOBINURIA
     Dosage: 900 MG, Q2W
     Route: 042
     Dates: start: 20120822

REACTIONS (10)
  - Chest pain [Recovered/Resolved]
  - Nausea [Unknown]
  - Headache [Recovering/Resolving]
  - Constipation [Unknown]
  - Dyspnoea [Recovered/Resolved]
  - Neurosurgery [Unknown]
  - Quality of life decreased [Unknown]
  - Heart rate abnormal [Recovered/Resolved]
  - Musculoskeletal chest pain [Unknown]
  - Pain [Unknown]

NARRATIVE: CASE EVENT DATE: 201403
